FAERS Safety Report 9121874 (Version 1)
Quarter: 2012Q4

REPORT INFORMATION
  Report Type: Spontaneous
  Country: US (occurrence: None)
  Receive Date: 20121026
  Receipt Date: 20121026
  Transmission Date: 20130627
  Serious: No
  Sender: FDA-Public Use
  Company Number: 2012US-004372

PATIENT
  Age: 73 Year
  Sex: Male
  Weight: 85.5 kg

DRUGS (3)
  1. OMONTYS (PEGINESATIDE) SOLUTION FOR INJECTION [Suspect]
     Indication: NEPHROGENIC ANAEMIA
     Route: 042
     Dates: start: 20120831, end: 20120831
  2. HEPARIN (HEPARIN) [Concomitant]
  3. EPOGEN (EPOGEN ALFA) [Concomitant]

REACTIONS (4)
  - Hypersensitivity [None]
  - Pruritus [None]
  - Dyspnoea [None]
  - Blood pressure decreased [None]
